FAERS Safety Report 8904704 (Version 1)
Quarter: 2012Q4

REPORT INFORMATION
  Report Type: 
  Country: US (occurrence: US)
  Receive Date: 20121113
  Receipt Date: 20121113
  Transmission Date: 20130627
  Serious: No
  Sender: FDA-Public Use
  Company Number: US-GLAXOSMITHKLINE-A0973610A

PATIENT
  Age: 77 Year
  Sex: Male
  Weight: 64.5 kg

DRUGS (5)
  1. COREG [Suspect]
     Indication: HYPERTENSION
     Dosage: 12.5MG Twice per day
     Route: 048
  2. LIPITOR [Concomitant]
  3. COZAAR [Concomitant]
  4. OMEPRAZOLE [Concomitant]
  5. DIPHENOXYLATE/ATROPINE [Concomitant]

REACTIONS (1)
  - Hyperglycaemia [Not Recovered/Not Resolved]
